FAERS Safety Report 9549641 (Version 5)
Quarter: 2014Q2

REPORT INFORMATION
  Report Type: Spontaneous
  Country: DE (occurrence: DE)
  Receive Date: 20130924
  Receipt Date: 20140512
  Transmission Date: 20141212
  Serious: Yes (Life-Threatening, Congenital Anomaly, Other)
  Sender: FDA-Public Use
  Company Number: DE-ELI_LILLY_AND_COMPANY-DE201309003429

PATIENT
  Age: 1 Day
  Sex: 0
  Weight: 3.72 kg

DRUGS (5)
  1. STRATTERA [Suspect]
     Indication: ATTENTION DEFICIT/HYPERACTIVITY DISORDER
     Dosage: 60 MG, UNKNOWN
     Route: 064
     Dates: start: 200504
  2. HUMALOG LISPRO [Suspect]
     Indication: TYPE 1 DIABETES MELLITUS
     Dosage: UNK, UNKNOWN
     Route: 064
  3. LEVOTHYROXIN [Concomitant]
     Dosage: 250 MG, UNKNOWN
     Route: 064
  4. IBUPROFEN [Concomitant]
     Indication: WISDOM TEETH REMOVAL
     Dosage: 400 MG, UNKNOWN
     Route: 064
     Dates: start: 201301
  5. FOLSAN [Concomitant]
     Indication: VITAMIN SUPPLEMENTATION
     Dosage: UNK, QD
     Route: 064

REACTIONS (16)
  - Craniofacial deformity [Unknown]
  - Oculoauriculovertebral dysplasia [Not Recovered/Not Resolved]
  - Neonatal diabetes mellitus [Not Recovered/Not Resolved]
  - Hypoglycaemia neonatal [Not Recovered/Not Resolved]
  - Hypophagia [Not Recovered/Not Resolved]
  - Neonatal respiratory distress syndrome [Not Recovered/Not Resolved]
  - Congenital tongue anomaly [Not Recovered/Not Resolved]
  - Thrombocytopenia neonatal [Not Recovered/Not Resolved]
  - Conjunctivitis [Not Recovered/Not Resolved]
  - Hypotonia neonatal [Not Recovered/Not Resolved]
  - Poor sucking reflex [Not Recovered/Not Resolved]
  - Hyporeflexia [Not Recovered/Not Resolved]
  - Diabetic foetopathy [Not Recovered/Not Resolved]
  - Apgar score abnormal [Unknown]
  - Foetal exposure during pregnancy [Recovered/Resolved]
  - Neonatal hypotension [Not Recovered/Not Resolved]
